FAERS Safety Report 7784503-8 (Version None)
Quarter: 2011Q3

REPORT INFORMATION
  Report Type: 
  Country: None (occurrence: None)
  Receive Date: 20110928
  Receipt Date: 20110923
  Transmission Date: 20111222
  Serious: Yes (Death)
  Sender: FDA-Public Use
  Company Number: CZ-ASTRAZENECA-2011SE57622

PATIENT
  Age: 18898 Day
  Sex: Female

DRUGS (1)
  1. IRESSA [Suspect]
     Route: 048
     Dates: start: 20110603

REACTIONS (3)
  - NAIL DISORDER [None]
  - SKIN TOXICITY [None]
  - DEATH [None]
